FAERS Safety Report 7771645-6 (Version None)
Quarter: 2011Q3

REPORT INFORMATION
  Report Type: 
  Country: None (occurrence: None)
  Receive Date: 20110922
  Receipt Date: 20110328
  Transmission Date: 20111222
  Serious: No
  Sender: FDA-Public Use
  Company Number: US-ASTRAZENECA-2007UW02262

PATIENT
  Age: 14794 Day
  Sex: Female
  Weight: 85.7 kg

DRUGS (6)
  1. SEROQUEL [Suspect]
     Indication: BIPOLAR DISORDER
     Dosage: TK 1 T HS FOR 2 DAYS ,THEN 2 TS HS  FOR 2 DAYS ,THEN 3 TS  HS FOR 2 DAYS ,THEN 4 TS HS
     Route: 048
     Dates: start: 20020612
  2. HYZAAR [Concomitant]
     Dosage: 50/12.5 TABLETS
     Dates: start: 20060821
  3. SEROQUEL [Suspect]
     Route: 048
     Dates: start: 20031101, end: 20040701
  4. ABILIFY [Concomitant]
     Dates: start: 20040416, end: 20040515
  5. SEROQUEL [Suspect]
     Dosage: 100 MG TK 6 TS PO QD
     Route: 048
     Dates: start: 20040126
  6. TOPAMAX [Concomitant]
     Dosage: 25 TO 200 MG TABLETS
     Dates: start: 20040126

REACTIONS (9)
  - FAECAL INCONTINENCE [None]
  - PROCTALGIA [None]
  - TYPE 2 DIABETES MELLITUS [None]
  - RECTAL HAEMORRHAGE [None]
  - RESPIRATORY TRACT INFECTION [None]
  - BLOOD TRIGLYCERIDES INCREASED [None]
  - ANAL FISTULA [None]
  - OROPHARYNGEAL PAIN [None]
  - LARYNGITIS [None]
